FAERS Safety Report 10371894 (Version 1)
Quarter: 2014Q3

REPORT INFORMATION
  Report Type: Spontaneous
  Country: HR (occurrence: HR)
  Receive Date: 20140808
  Receipt Date: 20140808
  Transmission Date: 20150326
  Serious: Yes (Other)
  Sender: FDA-Public Use
  Company Number: HR-GLAXOSMITHKLINE-B1020952A

PATIENT
  Age: 72 Year
  Sex: Male
  Weight: 85 kg

DRUGS (8)
  1. FURSEMID [Concomitant]
     Active Substance: FUROSEMIDE
     Indication: ESSENTIAL HYPERTENSION
     Route: 048
     Dates: start: 20131202
  2. PLENDIL [Concomitant]
     Active Substance: FELODIPINE
     Indication: ESSENTIAL HYPERTENSION
     Dosage: 5MG PER DAY
     Route: 048
     Dates: start: 20130318
  3. KALINOR [Concomitant]
     Active Substance: POTASSIUM CITRATE
     Indication: ESSENTIAL HYPERTENSION
     Route: 048
     Dates: start: 20131202
  4. AVODART [Concomitant]
     Active Substance: DUTASTERIDE
     Indication: BENIGN PROSTATIC HYPERPLASIA
     Dosage: .5MG PER DAY
     Route: 048
     Dates: start: 20140210
  5. SERETIDE [Suspect]
     Active Substance: FLUTICASONE FUROATE\SALMETEROL XINAFOATE
     Indication: ASTHMA
     Route: 055
     Dates: start: 20140624
  6. TULIP [Concomitant]
     Active Substance: ATORVASTATIN
     Indication: LIPID METABOLISM DISORDER
     Dosage: 20MG PER DAY
     Route: 048
     Dates: start: 20130220
  7. NEBILET [Concomitant]
     Active Substance: NEBIVOLOL
     Indication: ESSENTIAL HYPERTENSION
     Dosage: 5MG PER DAY
     Route: 048
     Dates: start: 20130423
  8. LOSARTIC [Concomitant]
     Active Substance: LOSARTAN POTASSIUM
     Indication: ESSENTIAL HYPERTENSION
     Dosage: 50MG PER DAY
     Route: 048
     Dates: start: 20130104

REACTIONS (5)
  - Nervousness [Unknown]
  - Moaning [Unknown]
  - Wheezing [Unknown]
  - Irritability [Unknown]
  - Poor quality sleep [Unknown]

NARRATIVE: CASE EVENT DATE: 201406
